FAERS Safety Report 9009807 (Version 1)
Quarter: 2013Q1

REPORT INFORMATION
  Report Type: Spontaneous
  Country: GB (occurrence: GB)
  Receive Date: 20130111
  Receipt Date: 20130111
  Transmission Date: 20140127
  Serious: Yes (Hospitalization)
  Sender: FDA-Public Use
  Company Number: GB-MYLANLABS-2013S1000296

PATIENT
  Age: 74 Year
  Sex: Female

DRUGS (14)
  1. CIPROFLOXACIN [Suspect]
     Indication: PNEUMONIA
     Route: 048
     Dates: start: 20110215, end: 20110403
  2. CIPROFLOXACIN [Suspect]
     Indication: PERITONITIS BACTERIAL
     Route: 048
     Dates: start: 20110215, end: 20110403
  3. OMEPRAZOLE [Suspect]
     Indication: PRODUCT USED FOR UNKNOWN INDICATION
  4. PIPERACILLIN AND TAZOBACTAM [Suspect]
     Indication: PERITONITIS BACTERIAL
     Route: 042
  5. TAZOCIN [Suspect]
     Indication: PNEUMONIA
     Dates: start: 20110211, end: 20110215
  6. ADCAL D3 [Concomitant]
     Indication: PRODUCT USED FOR UNKNOWN INDICATION
  7. BENZYDAMINE [Concomitant]
     Indication: PRODUCT USED FOR UNKNOWN INDICATION
  8. FOLIC ACID [Concomitant]
     Indication: PRODUCT USED FOR UNKNOWN INDICATION
  9. FUROSEMIDE [Concomitant]
     Indication: PRODUCT USED FOR UNKNOWN INDICATION
  10. LACTULOSE [Concomitant]
     Indication: PRODUCT USED FOR UNKNOWN INDICATION
  11. MULTIVITAMIN [Concomitant]
     Indication: PRODUCT USED FOR UNKNOWN INDICATION
  12. PANCREATIN [Concomitant]
     Indication: PRODUCT USED FOR UNKNOWN INDICATION
  13. PHYTOMENADIONE [Concomitant]
     Indication: PRODUCT USED FOR UNKNOWN INDICATION
  14. SPIRONOLACTONE [Concomitant]
     Indication: PRODUCT USED FOR UNKNOWN INDICATION

REACTIONS (3)
  - Clostridium difficile infection [Recovered/Resolved]
  - Diarrhoea [Recovered/Resolved]
  - Megacolon [Unknown]
